FAERS Safety Report 9140687 (Version 2)
Quarter: 2013Q2

REPORT INFORMATION
  Report Type: Spontaneous
  Country: FR (occurrence: FR)
  Receive Date: 20130305
  Receipt Date: 20130416
  Transmission Date: 20140414
  Serious: Yes (Death)
  Sender: FDA-Public Use
  Company Number: FR-GLAXOSMITHKLINE-B0871661A

PATIENT
  Age: 83 Year
  Sex: Female

DRUGS (10)
  1. DEROXAT [Suspect]
     Indication: DEPRESSION
     Route: 048
  2. XANAX [Concomitant]
     Dosage: 4.5MG PER DAY
     Route: 048
  3. ATARAX [Concomitant]
     Dosage: 25MG TWICE PER DAY
     Route: 048
  4. IMOVANE [Concomitant]
     Dosage: 1UNIT PER DAY
     Route: 048
  5. CLARADOL 500 CAFEINE [Concomitant]
     Dosage: 500MG THREE TIMES PER DAY
     Route: 048
  6. DAFALGAN CODEINE [Concomitant]
     Dosage: 1UNIT THREE TIMES PER DAY
     Route: 048
  7. TANAKAN [Concomitant]
     Dosage: 80MG TWICE PER DAY
     Route: 048
  8. INEXIUM [Concomitant]
     Dosage: 40MG PER DAY
     Route: 048
  9. BACTRIM FORTE [Concomitant]
     Dosage: 1TAB PER DAY
     Route: 048
     Dates: start: 20130121, end: 20130131
  10. CALCIDOSE VIT D [Concomitant]
     Dosage: 1SAC TWICE PER DAY
     Route: 048

REACTIONS (11)
  - Serotonin syndrome [Fatal]
  - Visual impairment [Unknown]
  - Tremor [Not Recovered/Not Resolved]
  - Akathisia [Not Recovered/Not Resolved]
  - Dyskinesia [Not Recovered/Not Resolved]
  - Balance disorder [Not Recovered/Not Resolved]
  - Hypotonia [Not Recovered/Not Resolved]
  - Cogwheel rigidity [Not Recovered/Not Resolved]
  - Hypoglycaemia [Unknown]
  - General physical health deterioration [Unknown]
  - Pyrexia [Not Recovered/Not Resolved]
